FAERS Safety Report 6167201-6 (Version None)
Quarter: 2009Q2

REPORT INFORMATION
  Report Type: 
  Country: None (occurrence: None)
  Receive Date: 20090424
  Receipt Date: 20090420
  Transmission Date: 20091009
  Serious: Yes (Life-Threatening)
  Sender: FDA-Public Use
  Company Number: US-PURDUE-USA_2009_0037937

PATIENT
  Sex: Female

DRUGS (1)
  1. MORPHINE SULFATE [Suspect]
     Indication: MIGRAINE
     Dosage: 750 MG, UNK

REACTIONS (4)
  - DIARRHOEA [None]
  - DRUG WITHDRAWAL SYNDROME [None]
  - ORGAN FAILURE [None]
  - VOMITING [None]
